FAERS Safety Report 14019900 (Version 2)
Quarter: 2017Q4

REPORT INFORMATION
  Report Type: Spontaneous
  Country: US (occurrence: US)
  Receive Date: 20170928
  Receipt Date: 20171024
  Transmission Date: 20180321
  Serious: Yes (Death, Hospitalization)
  Sender: FDA-Public Use
  Company Number: US-JNJFOC-20170928553

PATIENT
  Age: 74 Year
  Sex: Male

DRUGS (15)
  1. SENOKOT [Concomitant]
     Active Substance: SENNOSIDES
  2. DILTIAZEM. [Concomitant]
     Active Substance: DILTIAZEM
  3. MULTIVITAMINS [Concomitant]
     Active Substance: VITAMINS
  4. PANTOPRAZOLE [Concomitant]
     Active Substance: PANTOPRAZOLE
  5. DIGOXIN. [Concomitant]
     Active Substance: DIGOXIN
  6. ASCORBIC ACID. [Concomitant]
     Active Substance: ASCORBIC ACID
  7. PREDNISONE. [Concomitant]
     Active Substance: PREDNISONE
  8. ZOLOFT [Concomitant]
     Active Substance: SERTRALINE HYDROCHLORIDE
  9. LYSINE [Concomitant]
     Active Substance: LYSINE
  10. IMBRUVICA [Suspect]
     Active Substance: IBRUTINIB
     Indication: CHRONIC LYMPHOCYTIC LEUKAEMIA
     Route: 048
     Dates: start: 20170411
  11. IMBRUVICA [Suspect]
     Active Substance: IBRUTINIB
     Indication: CHRONIC LYMPHOCYTIC LEUKAEMIA
     Route: 048
     Dates: start: 20170330
  12. LASIX [Concomitant]
     Active Substance: FUROSEMIDE
  13. IMBRUVICA [Suspect]
     Active Substance: IBRUTINIB
     Indication: CHRONIC LYMPHOCYTIC LEUKAEMIA
     Route: 048
     Dates: start: 20170328
  14. POTASSIUM [Concomitant]
     Active Substance: POTASSIUM
  15. TAMSULOSIN [Concomitant]
     Active Substance: TAMSULOSIN

REACTIONS (3)
  - Off label use [Unknown]
  - Cardiac failure [Fatal]
  - Product use issue [Unknown]

NARRATIVE: CASE EVENT DATE: 20170328
